FAERS Safety Report 9677492 (Version 1)
Quarter: 2013Q4

REPORT INFORMATION
  Report Type: Report from Study
  Country: MX (occurrence: MX)
  Receive Date: 20131108
  Receipt Date: 20131108
  Transmission Date: 20140711
  Serious: Yes (Life-Threatening)
  Sender: FDA-Public Use
  Company Number: PHHY2013MX126616

PATIENT
  Age: 64 Year
  Sex: Female

DRUGS (1)
  1. ACLASTA [Suspect]
     Dosage: 5 MG/100ML
     Route: 042
     Dates: start: 20130305

REACTIONS (3)
  - Feeling abnormal [Recovered/Resolved]
  - Bone pain [Recovered/Resolved]
  - Back pain [Recovered/Resolved]
